FAERS Safety Report 15632548 (Version 1)
Quarter: 2018Q4

REPORT INFORMATION
  Report Type: Spontaneous
  Country: US (occurrence: US)
  Receive Date: 20181119
  Receipt Date: 20181119
  Transmission Date: 20190205
  Serious: Yes (Life-Threatening, Hospitalization)
  Sender: FDA-Public Use
  Company Number: US-JUBILANT CADISTA PHARMACEUTICALS-2018JUB00467

PATIENT
  Age: 16 Day
  Sex: Male

DRUGS (2)
  1. ACETAMINOPHEN WITH OXYCODONE [Suspect]
     Active Substance: ACETAMINOPHEN\OXYCODONE HYDROCHLORIDE
     Route: 063
  2. CYCLOBENZAPRINE. [Suspect]
     Active Substance: CYCLOBENZAPRINE
     Route: 063

REACTIONS (4)
  - Bradycardia [Unknown]
  - Hypotension [Unknown]
  - Respiratory arrest [Unknown]
  - Exposure via breast milk [Recovered/Resolved]
